FAERS Safety Report 13371422 (Version 1)
Quarter: 2017Q1

REPORT INFORMATION
  Report Type: Spontaneous
  Country: US (occurrence: US)
  Receive Date: 20170324
  Receipt Date: 20170324
  Transmission Date: 20170429
  Serious: No
  Sender: FDA-Public Use
  Company Number: US-ELI_LILLY_AND_COMPANY-US201608004354

PATIENT
  Sex: Female

DRUGS (3)
  1. CYMBALTA [Suspect]
     Active Substance: DULOXETINE HYDROCHLORIDE
     Dosage: 60 MG, QD
     Route: 048
     Dates: start: 20120705, end: 20120912
  2. CYMBALTA [Suspect]
     Active Substance: DULOXETINE HYDROCHLORIDE
     Dosage: 20 MG, QD
     Route: 048
     Dates: start: 20120912, end: 20120912
  3. CYMBALTA [Suspect]
     Active Substance: DULOXETINE HYDROCHLORIDE
     Indication: PRODUCT USED FOR UNKNOWN INDICATION
     Dosage: 40 MG, QD
     Route: 048
     Dates: start: 20120912, end: 20121114

REACTIONS (17)
  - Confusional state [Unknown]
  - Insomnia [Unknown]
  - Fatigue [Unknown]
  - Vomiting [Unknown]
  - Diarrhoea [Unknown]
  - Dizziness [Unknown]
  - Affect lability [Unknown]
  - Agitation [Unknown]
  - Hyperhidrosis [Unknown]
  - Vertigo [Unknown]
  - Lethargy [Unknown]
  - Drug withdrawal syndrome [Not Recovered/Not Resolved]
  - Depression [Unknown]
  - Nausea [Unknown]
  - Irritability [Unknown]
  - Anxiety [Unknown]
  - Headache [Unknown]
